FAERS Safety Report 16879754 (Version 2)
Quarter: 2019Q4

REPORT INFORMATION
  Report Type: Spontaneous
  Country: RO (occurrence: RO)
  Receive Date: 20191003
  Receipt Date: 20191024
  Transmission Date: 20200122
  Serious: Yes (Death)
  Sender: FDA-Public Use
  Company Number: RO-PFIZER INC-2019426769

PATIENT
  Age: 68 Year
  Sex: Female
  Weight: 78 kg

DRUGS (1)
  1. SUTENT [Suspect]
     Active Substance: SUNITINIB MALATE
     Indication: METASTATIC RENAL CELL CARCINOMA
     Dosage: 50 MG, CYCLIC, 30 DAYS OF ADMINISTRATION AND 14 DAYS OF PAUSE
     Dates: start: 20190603, end: 20190731

REACTIONS (1)
  - Neoplasm progression [Fatal]
